FAERS Safety Report 6290556-9 (Version None)
Quarter: 2009Q3

REPORT INFORMATION
  Report Type: 
  Country: None (occurrence: None)
  Receive Date: 20090730
  Receipt Date: 20090720
  Transmission Date: 20100115
  Serious: Yes (Other)
  Sender: FDA-Public Use
  Company Number: US-ROCHE-643193

PATIENT

DRUGS (5)
  1. BONIVA [Suspect]
     Indication: DRUG USE FOR UNKNOWN INDICATION
     Dosage: MISSED ONE DOSE OF JUNE 2009
     Route: 065
     Dates: start: 20060701, end: 20090501
  2. BONIVA [Suspect]
     Route: 065
     Dates: start: 20090704
  3. CALCIUM [Concomitant]
  4. VITAMINE D [Concomitant]
  5. MULTI-VITAMIN [Concomitant]

REACTIONS (7)
  - ACCIDENT [None]
  - DENGUE FEVER [None]
  - NECROSIS [None]
  - SKIN LACERATION [None]
  - SURGERY [None]
  - WOUND [None]
  - WOUND INFECTION [None]
